FAERS Safety Report 14659209 (Version 1)
Quarter: 2018Q1

REPORT INFORMATION
  Report Type: Spontaneous
  Country: US (occurrence: US)
  Receive Date: 20180320
  Receipt Date: 20180320
  Transmission Date: 20180509
  Serious: Yes (Hospitalization, Other)
  Sender: FDA-Public Use
  Company Number: US-SA-2018SA075490

PATIENT
  Age: 74 Year
  Sex: Female

DRUGS (1)
  1. BISACODYL. [Suspect]
     Active Substance: BISACODYL
     Route: 065

REACTIONS (5)
  - Haematochezia [Unknown]
  - Drug ineffective [Unknown]
  - Haematemesis [Unknown]
  - Muscle spasms [Unknown]
  - Cerebrovascular accident [Unknown]
